FAERS Safety Report 5537752-3 (Version None)
Quarter: 2007Q4

REPORT INFORMATION
  Report Type: 
  Country: None (occurrence: None)
  Receive Date: 20071207
  Receipt Date: 20071127
  Transmission Date: 20080405
  Serious: Yes (Other)
  Sender: FDA-Public Use
  Company Number: NL-ABBOTT-07P-114-0415919-00

PATIENT
  Sex: Male

DRUGS (5)
  1. DEPAKENE [Suspect]
     Indication: EPILEPSY
     Route: 048
  2. DEPAKENE [Suspect]
     Route: 048
  3. DEPAKENE [Suspect]
     Route: 048
  4. CALCIUM CARBONATE [Concomitant]
     Indication: VITAMIN SUPPLEMENTATION
     Route: 048
  5. MACROGOL [Concomitant]
     Indication: CONSTIPATION
     Route: 048

REACTIONS (11)
  - BLOOD FOLLICLE STIMULATING HORMONE INCREASED [None]
  - BLOOD TESTOSTERONE DECREASED [None]
  - DRUG INEFFECTIVE [None]
  - FALL [None]
  - HYPONATRAEMIA [None]
  - INAPPROPRIATE ANTIDIURETIC HORMONE SECRETION [None]
  - INCREASED APPETITE [None]
  - INJURY [None]
  - OSTEOPOROSIS [None]
  - PRIMARY HYPOGONADISM [None]
  - VERTEBRAL INJURY [None]
